FAERS Safety Report 13680166 (Version 1)
Quarter: 2017Q2

REPORT INFORMATION
  Report Type: Spontaneous
  Country: GR (occurrence: GR)
  Receive Date: 20170622
  Receipt Date: 20170622
  Transmission Date: 20170830
  Serious: Yes (Other)
  Sender: FDA-Public Use
  Company Number: GR-JAZZ-2017-GR-007877

PATIENT
  Age: 43 Year
  Sex: Male

DRUGS (7)
  1. DOXORUBICIN [Concomitant]
     Active Substance: DOXORUBICIN
     Indication: MANTLE CELL LYMPHOMA
  2. ASPARAGINASE [Suspect]
     Active Substance: ASPARAGINASE
     Indication: B-CELL LYMPHOMA
  3. VINCRISTINE [Concomitant]
     Active Substance: VINCRISTINE
     Indication: MANTLE CELL LYMPHOMA
  4. DEXAMETHASONE. [Concomitant]
     Active Substance: DEXAMETHASONE
     Indication: MANTLE CELL LYMPHOMA
  5. CYTARABINE. [Concomitant]
     Active Substance: CYTARABINE
     Indication: MANTLE CELL LYMPHOMA
  6. METHOTREXATE. [Concomitant]
     Active Substance: METHOTREXATE
     Indication: MANTLE CELL LYMPHOMA
  7. CYCLOPHOSPHAMIDE. [Concomitant]
     Active Substance: CYCLOPHOSPHAMIDE
     Indication: MANTLE CELL LYMPHOMA

REACTIONS (1)
  - Cerebral venous thrombosis [Recovered/Resolved]
